FAERS Safety Report 17200461 (Version 3)
Quarter: 2020Q1

REPORT INFORMATION
  Report Type: Report from Study
  Country: JP (occurrence: JP)
  Receive Date: 20191226
  Receipt Date: 20200202
  Transmission Date: 20200409
  Serious: Yes (Hospitalization)
  Sender: FDA-Public Use
  Company Number: JP-CELLTRION INC.-2019JP027527

PATIENT

DRUGS (7)
  1. TS-1 [Suspect]
     Active Substance: GIMERACIL\OTERACIL\TEGAFUR
     Dosage: 50 MILLIGRAM, BID
     Route: 048
     Dates: start: 20191219
  2. OXALIPLATIN I.V. INFUSION SOLUTION 100MG[NK] (OXALIPLATIN) [Suspect]
     Active Substance: OXALIPLATIN
     Indication: GASTRIC CANCER
     Dosage: 207 MILLIGRAM, QD
     Route: 041
  3. TRASTUZUMAB BS FOR I.V. INFUSION [NK] [Suspect]
     Active Substance: TRASTUZUMAB
     Indication: GASTRIC CANCER
     Dosage: 309 MG, QD
     Route: 041
     Dates: start: 20190808
  4. DECADRON [Concomitant]
     Active Substance: DEXAMETHASONE
     Indication: PROPHYLAXIS OF NAUSEA AND VOMITING
     Dosage: UNK
     Dates: start: 20190925
  5. OXALIPLATIN I.V. INFUSION SOLUTION 100MG[NK] (OXALIPLATIN) [Suspect]
     Active Substance: OXALIPLATIN
     Dosage: 159 MILLIGRAM, QD
     Route: 041
     Dates: start: 20191126
  6. TS-1 [Suspect]
     Active Substance: GIMERACIL\OTERACIL\TEGAFUR
     Indication: GASTRIC CANCER
     Dosage: 60 MILLIGRAM, BID
     Route: 048
  7. NEXIUM [Concomitant]
     Active Substance: ESOMEPRAZOLE MAGNESIUM
     Indication: ANTACID THERAPY
     Dosage: UNK
     Dates: start: 20191126

REACTIONS (1)
  - Ascites [Recovering/Resolving]

NARRATIVE: CASE EVENT DATE: 20191217
